FAERS Safety Report 12726291 (Version 1)
Quarter: 2016Q3

REPORT INFORMATION
  Report Type: Spontaneous
  Country: US (occurrence: US)
  Receive Date: 20160908
  Receipt Date: 20160908
  Transmission Date: 20161109
  Serious: Yes (Other)
  Sender: FDA-Public Use
  Company Number: US-VIVUS-2016V1000189

PATIENT
  Age: 29 Year
  Sex: Female
  Weight: 93.98 kg

DRUGS (1)
  1. QSYMIA [Suspect]
     Active Substance: PHENTERMINE HYDROCHLORIDE\TOPIRAMATE
     Indication: WEIGHT DECREASED
     Route: 048
     Dates: start: 20160405, end: 20160407

REACTIONS (1)
  - Angle closure glaucoma [Unknown]

NARRATIVE: CASE EVENT DATE: 20160407
